FAERS Safety Report 22659561 (Version 1)
Quarter: 2023Q2

REPORT INFORMATION
  Report Type: Spontaneous
  Country: US (occurrence: US)
  Receive Date: 20230630
  Receipt Date: 20230630
  Transmission Date: 20230722
  Serious: Yes (Hospitalization, Other)
  Sender: FDA-Public Use
  Company Number: US-GLAND PHARMA LIMITED-2023US002390

PATIENT

DRUGS (5)
  1. HALOPERIDOL [Suspect]
     Active Substance: HALOPERIDOL
     Indication: Psychomotor hyperactivity
  2. LORAZEPAM [Suspect]
     Active Substance: LORAZEPAM
     Indication: Psychomotor hyperactivity
     Dosage: 2 MG
     Route: 030
  3. LORAZEPAM [Suspect]
     Active Substance: LORAZEPAM
     Dosage: 12 MG, DAILY
     Route: 030
  4. RISPERIDONE [Suspect]
     Active Substance: RISPERIDONE
     Indication: Psychomotor hyperactivity
     Dosage: 0.5 MG, BID
  5. RISPERIDONE [Suspect]
     Active Substance: RISPERIDONE
     Dosage: 2 MG, BID

REACTIONS (1)
  - Catatonia [Recovered/Resolved]
